FAERS Safety Report 23078078 (Version 2)
Quarter: 2024Q1

REPORT INFORMATION
  Report Type: Report from Study
  Country: US (occurrence: US)
  Receive Date: 20231018
  Receipt Date: 20240111
  Transmission Date: 20240410
  Serious: Yes (Hospitalization, Other)
  Sender: FDA-Public Use
  Company Number: US-ABBVIE-5391111

PATIENT
  Age: 54 Year
  Sex: Female
  Weight: 56.699 kg

DRUGS (11)
  1. SKYRIZI [Suspect]
     Active Substance: RISANKIZUMAB-RZAA
     Indication: Psoriasis
     Dosage: TIME INTERVAL: 0.08333333 WEEKS: FORM STRENGTH: 150 MILLIGRAMS
     Route: 058
     Dates: end: 202308
  2. SKYRIZI [Suspect]
     Active Substance: RISANKIZUMAB-RZAA
     Dosage: FORM STRENGTH: 150 MILLIGRAMS
     Route: 058
     Dates: start: 20221112
  3. EFFEXOR [Concomitant]
     Active Substance: VENLAFAXINE HYDROCHLORIDE
     Indication: Anxiety
  4. TRAZODONE [Concomitant]
     Active Substance: TRAZODONE HYDROCHLORIDE
     Indication: Product used for unknown indication
  5. METOPROLOL [Concomitant]
     Active Substance: METOPROLOL
     Indication: Hypertension
  6. AMPHETAMINE [Concomitant]
     Active Substance: AMPHETAMINE
     Indication: Narcolepsy
  7. HYDROXYZINE [Concomitant]
     Active Substance: HYDROXYZINE HYDROCHLORIDE
     Indication: Pruritus
  8. ELIQUIS [Concomitant]
     Active Substance: APIXABAN
     Indication: Blood disorder
  9. LASIX [Concomitant]
     Active Substance: FUROSEMIDE
     Indication: Oedema
  10. DICYCLOMINE [Concomitant]
     Active Substance: DICYCLOMINE HYDROCHLORIDE
     Indication: Irritable bowel syndrome
  11. VITAMIN D [Concomitant]
     Active Substance: VITAMIN D NOS
     Indication: Product used for unknown indication

REACTIONS (12)
  - Tuberculosis [Not Recovered/Not Resolved]
  - Chronic obstructive pulmonary disease [Not Recovered/Not Resolved]
  - Unevaluable event [Unknown]
  - Oxygen saturation decreased [Unknown]
  - Dyspnoea [Recovering/Resolving]
  - Immunoglobulins decreased [Unknown]
  - Immune system disorder [Unknown]
  - Night sweats [Recovering/Resolving]
  - Rash [Not Recovered/Not Resolved]
  - Pulmonary mass [Unknown]
  - Chronic obstructive pulmonary disease [Not Recovered/Not Resolved]
  - Productive cough [Recovering/Resolving]

NARRATIVE: CASE EVENT DATE: 20221201
